FAERS Safety Report 11789128 (Version 1)
Quarter: 2015Q4

REPORT INFORMATION
  Report Type: Spontaneous
  Country: FR (occurrence: FR)
  Receive Date: 20151201
  Receipt Date: 20151201
  Transmission Date: 20160305
  Serious: Yes (Hospitalization)
  Sender: FDA-Public Use
  Company Number: FR-AUROBINDO-AUR-APL-2015-11033

PATIENT
  Age: 82 Year
  Sex: Female

DRUGS (2)
  1. PERINDOPRIL ARROW 8MG,TABLET [Suspect]
     Active Substance: PERINDOPRIL
     Indication: HYPERTENSION
     Dosage: 8 MG, ONCE A DAY
     Route: 048
     Dates: end: 20151009
  2. METFORMIN [Concomitant]
     Active Substance: METFORMIN HYDROCHLORIDE
     Indication: PRODUCT USED FOR UNKNOWN INDICATION
     Dosage: 500 MG, 3 TIMES A DAY
     Route: 065
     Dates: end: 20151009

REACTIONS (4)
  - Hyperkalaemia [Recovered/Resolved]
  - Anuria [Unknown]
  - Blood creatine abnormal [Unknown]
  - Acute kidney injury [Recovered/Resolved]

NARRATIVE: CASE EVENT DATE: 20151009
